FAERS Safety Report 5041003-6 (Version None)
Quarter: 2006Q3

REPORT INFORMATION
  Report Type: 
  Country: None (occurrence: None)
  Receive Date: 20060703
  Receipt Date: 20050919
  Transmission Date: 20061208
  Serious: No
  Sender: FDA-Public Use
  Company Number: US-GLAXOSMITHKLINE-A0574819A

PATIENT
  Age: 53 Year
  Sex: Female

DRUGS (2)
  1. PARNATE [Suspect]
     Indication: DEPRESSION
     Route: 048
  2. CLONIDINE [Concomitant]

REACTIONS (1)
  - PARADOXICAL DRUG REACTION [None]
